FAERS Safety Report 21410842 (Version 1)
Quarter: 2022Q4

REPORT INFORMATION
  Report Type: Spontaneous
  Country: US (occurrence: None)
  Receive Date: 20221004
  Receipt Date: 20221004
  Transmission Date: 20230112
  Serious: No
  Sender: FDA-Public Use
  Company Number: None

PATIENT
  Age: 68 Year
  Sex: Female

DRUGS (1)
  1. MODAFINIL [Suspect]
     Active Substance: MODAFINIL

REACTIONS (4)
  - Urine odour abnormal [None]
  - Rash erythematous [None]
  - Rash pruritic [None]
  - Drug ineffective [None]

NARRATIVE: CASE EVENT DATE: 20220808
